FAERS Safety Report 4427563-4 (Version None)
Quarter: 2004Q3

REPORT INFORMATION
  Report Type: 
  Country: None (occurrence: None)
  Receive Date: 20040817
  Receipt Date: 20020516
  Transmission Date: 20050211
  Serious: Yes (Hospitalization, Disabling, Other)
  Sender: FDA-Public Use
  Company Number: US-MERCK-0205USA02029

PATIENT
  Age: 49 Year
  Sex: Male
  Weight: 75 kg

DRUGS (2)
  1. LORCET-HD [Concomitant]
     Indication: PAIN
     Route: 065
  2. VIOXX [Suspect]
     Route: 048

REACTIONS (49)
  - AMNESIA [None]
  - ANAEMIA [None]
  - ANGIOPATHY [None]
  - ANXIETY [None]
  - ARTHRALGIA [None]
  - ARTHRITIS BACTERIAL [None]
  - ARTHROPATHY [None]
  - ASTHENIA [None]
  - BACK PAIN [None]
  - BLOOD BILIRUBIN INCREASED [None]
  - BLOOD UREA INCREASED [None]
  - BONE LESION [None]
  - BONE NEOPLASM [None]
  - CARDIAC MURMUR [None]
  - CEREBROVASCULAR ACCIDENT [None]
  - CHEST PAIN [None]
  - CHOLESTEROL GRANULOMA [None]
  - CHRONIC FATIGUE SYNDROME [None]
  - DEPRESSION [None]
  - DRUG DEPENDENCE [None]
  - DYSPNOEA [None]
  - ERYTHEMA [None]
  - FATIGUE [None]
  - HAEMOLYSIS [None]
  - HAEMORRHAGE [None]
  - HEART RATE IRREGULAR [None]
  - HIP ARTHROPLASTY [None]
  - HYPERLIPIDAEMIA [None]
  - HYPOACUSIS [None]
  - HYPOAESTHESIA [None]
  - INJURY [None]
  - INSOMNIA [None]
  - JOINT RANGE OF MOTION DECREASED [None]
  - LABILE HYPERTENSION [None]
  - MUSCLE CRAMP [None]
  - NAIL DISORDER [None]
  - NAUSEA [None]
  - OEDEMA [None]
  - OSTEOARTHRITIS [None]
  - PAIN [None]
  - PROTEIN URINE PRESENT [None]
  - RHINITIS ALLERGIC [None]
  - RHINORRHOEA [None]
  - SPHEROCYTIC ANAEMIA [None]
  - SPLENECTOMY [None]
  - TACHYCARDIA [None]
  - URINARY SEDIMENT PRESENT [None]
  - WHITE BLOOD CELLS URINE POSITIVE [None]
  - WHOLE BLOOD TRANSFUSION [None]
